FAERS Safety Report 13195722 (Version 1)
Quarter: 2017Q1

REPORT INFORMATION
  Report Type: Spontaneous
  Country: US (occurrence: US)
  Receive Date: 20170207
  Receipt Date: 20170207
  Transmission Date: 20170428
  Serious: Yes (Other)
  Sender: FDA-Public Use
  Company Number: None

PATIENT
  Age: 61 Year
  Sex: Male

DRUGS (1)
  1. HARVONI [Suspect]
     Active Substance: LEDIPASVIR\SOFOSBUVIR
     Indication: HEPATITIS C
     Dosage: 1  TABLET DAILY PO
     Route: 048
     Dates: start: 20161115

REACTIONS (2)
  - Weight increased [None]
  - Oedema peripheral [None]

NARRATIVE: CASE EVENT DATE: 20170201
